FAERS Safety Report 26087727 (Version 1)
Quarter: 2025Q4

REPORT INFORMATION
  Report Type: Spontaneous
  Country: CN (occurrence: CN)
  Receive Date: 20251125
  Receipt Date: 20251125
  Transmission Date: 20260118
  Serious: Yes (Hospitalization)
  Sender: PFIZER
  Company Number: CN-PFIZER INC-PV202500137554

PATIENT
  Age: 63 Year
  Sex: Male
  Weight: 60 kg

DRUGS (10)
  1. CYTARABINE [Suspect]
     Active Substance: CYTARABINE
     Indication: Mantle cell lymphoma
     Dosage: 2 G, 2X/DAY
     Route: 041
     Dates: start: 20251103, end: 20251104
  2. CYTARABINE [Suspect]
     Active Substance: CYTARABINE
     Indication: Hypertension
  3. CYTARABINE [Suspect]
     Active Substance: CYTARABINE
     Indication: Diabetic retinopathy
  4. CYTARABINE [Suspect]
     Active Substance: CYTARABINE
     Indication: Type 2 diabetes mellitus
  5. CYTARABINE [Suspect]
     Active Substance: CYTARABINE
     Indication: Chronic hepatitis B
  6. CISPLATIN [Suspect]
     Active Substance: CISPLATIN
     Indication: Mantle cell lymphoma
     Dosage: 30 MG, 1X/DAY
     Route: 041
     Dates: start: 20251028, end: 20251030
  7. CISPLATIN [Suspect]
     Active Substance: CISPLATIN
     Indication: Hypertension
  8. CISPLATIN [Suspect]
     Active Substance: CISPLATIN
     Indication: Diabetic retinopathy
  9. CISPLATIN [Suspect]
     Active Substance: CISPLATIN
     Indication: Type 2 diabetes mellitus
  10. CISPLATIN [Suspect]
     Active Substance: CISPLATIN
     Indication: Chronic hepatitis B

REACTIONS (9)
  - Pyrexia [Recovered/Resolved]
  - Chills [Unknown]
  - Pain in extremity [Recovering/Resolving]
  - Peripheral swelling [Recovering/Resolving]
  - Platelet count decreased [Recovering/Resolving]
  - Agranulocytosis [Not Recovered/Not Resolved]
  - White blood cell count decreased [Not Recovered/Not Resolved]
  - Faecal occult blood positive [Unknown]
  - Urinary occult blood positive [Unknown]

NARRATIVE: CASE EVENT DATE: 20251104
